FAERS Safety Report 13774800 (Version 1)
Quarter: 2017Q3

REPORT INFORMATION
  Report Type: Spontaneous
  Country: ES (occurrence: ES)
  Receive Date: 20170720
  Receipt Date: 20170720
  Transmission Date: 20171127
  Serious: Yes (Life-Threatening, Hospitalization, Other)
  Sender: FDA-Public Use
  Company Number: PHHY2017ES072188

PATIENT
  Age: 82 Year
  Sex: Female

DRUGS (2)
  1. EUCREAS [Suspect]
     Active Substance: METFORMIN HYDROCHLORIDE\VILDAGLIPTIN
     Indication: TYPE 2 DIABETES MELLITUS
     Dosage: 50/100, UNK
     Route: 065
  2. METFORMIN [Suspect]
     Active Substance: METFORMIN HYDROCHLORIDE
     Indication: TYPE 2 DIABETES MELLITUS
     Route: 065

REACTIONS (8)
  - Metabolic acidosis [Recovered/Resolved]
  - Lactic acidosis [Unknown]
  - Acute prerenal failure [Unknown]
  - Toxicity to various agents [Recovered/Resolved]
  - Incorrect dose administered [Unknown]
  - Disorientation [Unknown]
  - Diarrhoea [Unknown]
  - Drug administration error [Unknown]

NARRATIVE: CASE EVENT DATE: 20170505
